FAERS Safety Report 19039824 (Version 1)
Quarter: 2021Q1

REPORT INFORMATION
  Report Type: Report from Study
  Country: AU (occurrence: AU)
  Receive Date: 20210322
  Receipt Date: 20210322
  Transmission Date: 20210420
  Serious: Yes (Other)
  Sender: FDA-Public Use
  Company Number: AU-NALPROPION PHARMACEUTICALS INC.-2021-012498

PATIENT

DRUGS (13)
  1. EZETROL [Concomitant]
     Active Substance: EZETIMIBE
     Indication: DEPRESSION
     Dosage: 10 MILLIGRAM
  2. METFORMIN [Concomitant]
     Active Substance: METFORMIN HYDROCHLORIDE
     Indication: DEPRESSION
     Dosage: 850 MILLIGRAM (DAILY)
  3. CONTRAVE [Suspect]
     Active Substance: BUPROPION HYDROCHLORIDE\NALTREXONE HYDROCHLORIDE
     Indication: WEIGHT DECREASED
     Dosage: UNK
     Route: 065
     Dates: start: 20210209
  4. METFORMIN [Concomitant]
     Active Substance: METFORMIN HYDROCHLORIDE
     Indication: GLUCOSE TOLERANCE IMPAIRED
  5. LEXAPRO [Concomitant]
     Active Substance: ESCITALOPRAM OXALATE
     Indication: DEPRESSION
     Dosage: 10 MILLIGRAM
  6. EZETROL [Concomitant]
     Active Substance: EZETIMIBE
     Indication: HYPERCHOLESTEROLAEMIA
  7. OLMESARTAN [Concomitant]
     Active Substance: OLMESARTAN
     Indication: DEPRESSION
     Dosage: 40 MILLIGRAM
  8. CONTRAVE [Suspect]
     Active Substance: BUPROPION HYDROCHLORIDE\NALTREXONE HYDROCHLORIDE
     Dosage: 2 TABLETS TWICE DAILY
     Route: 065
     Dates: start: 20210302
  9. CARTIA                             /00002701/ [Concomitant]
     Active Substance: ASPIRIN
     Indication: DEPRESSION
  10. NOTEN [Concomitant]
     Active Substance: ATENOLOL
     Indication: HYPERTENSION
  11. NOTEN [Concomitant]
     Active Substance: ATENOLOL
     Indication: DEPRESSION
     Dosage: 50 MILLIGRAM (TWICE DAILY)
  12. CARTIA                             /00002701/ [Concomitant]
     Active Substance: ASPIRIN
     Indication: CARDIOVASCULAR DISORDER
     Dosage: 100 MILLIGRAM (DAILY)
  13. OLMESARTAN [Concomitant]
     Active Substance: OLMESARTAN
     Indication: HYPERTENSION

REACTIONS (1)
  - Pruritus [Recovering/Resolving]

NARRATIVE: CASE EVENT DATE: 20210302
